FAERS Safety Report 10047785 (Version 1)
Quarter: 2014Q1

REPORT INFORMATION
  Report Type: Report from Study
  Country: US (occurrence: US)
  Receive Date: 20140331
  Receipt Date: 20140331
  Transmission Date: 20141002
  Serious: Yes (Other)
  Sender: FDA-Public Use
  Company Number: US-ALEXION-A200800555

PATIENT
  Sex: Female

DRUGS (2)
  1. SOLIRIS [Suspect]
     Indication: PAROXYSMAL NOCTURNAL HAEMOGLOBINURIA
     Dosage: UNK
     Route: 042
  2. EXJADE [Suspect]
     Indication: IRON OVERLOAD
     Dosage: UNK
     Dates: start: 200802

REACTIONS (3)
  - Transfusion [Unknown]
  - Blood iron increased [Unknown]
  - Diarrhoea [Unknown]
